FAERS Safety Report 8120483-3 (Version None)
Quarter: 2012Q1

REPORT INFORMATION
  Report Type: 
  Country: None (occurrence: None)
  Receive Date: 20120203
  Receipt Date: 20120123
  Transmission Date: 20120608
  Serious: Yes (Hospitalization)
  Sender: FDA-Public Use
  Company Number: 2012P1003253

PATIENT
  Age: 7 Year
  Sex: Male

DRUGS (1)
  1. DILTIAZEM [Suspect]
     Indication: ACCIDENTAL EXPOSURE

REACTIONS (13)
  - BRADYCARDIA [None]
  - SOMNOLENCE [None]
  - HYPOTENSION [None]
  - ANION GAP INCREASED [None]
  - SLUGGISHNESS [None]
  - MUCOUS MEMBRANE DISORDER [None]
  - FATIGUE [None]
  - MULTI-ORGAN DISORDER [None]
  - DIABETIC KETOACIDOSIS [None]
  - NODAL RHYTHM [None]
  - IRRITABILITY [None]
  - SHOCK [None]
  - RENAL FAILURE ACUTE [None]
